FAERS Safety Report 14517734 (Version 15)
Quarter: 2024Q3

REPORT INFORMATION
  Report Type: Report from Study
  Country: CA (occurrence: CA)
  Receive Date: 20180212
  Receipt Date: 20240703
  Transmission Date: 20241017
  Serious: Yes (Other)
  Sender: ROCHE
  Company Number: CA-002147023-PHHY2016CA148310

PATIENT
  Age: 30 Year
  Sex: Male
  Weight: 100.0 kg

DRUGS (27)
  1. XOLAIR [Suspect]
     Active Substance: OMALIZUMAB
     Indication: Asthma
     Dosage: FREQUENCY TEXT:1
     Route: 058
     Dates: start: 20160719
  2. XOLAIR [Suspect]
     Active Substance: OMALIZUMAB
     Route: 058
     Dates: start: 20161011
  3. XOLAIR [Suspect]
     Active Substance: OMALIZUMAB
     Route: 058
     Dates: start: 20170110
  4. XOLAIR [Suspect]
     Active Substance: OMALIZUMAB
     Route: 058
     Dates: start: 20170130
  5. XOLAIR [Suspect]
     Active Substance: OMALIZUMAB
     Route: 058
     Dates: start: 20170424
  6. XOLAIR [Suspect]
     Active Substance: OMALIZUMAB
     Route: 058
     Dates: start: 20170814
  7. XOLAIR [Suspect]
     Active Substance: OMALIZUMAB
     Route: 058
     Dates: start: 20170911
  8. XOLAIR [Suspect]
     Active Substance: OMALIZUMAB
     Route: 058
     Dates: start: 20180104
  9. XOLAIR [Suspect]
     Active Substance: OMALIZUMAB
     Route: 058
     Dates: start: 201801
  10. XOLAIR [Suspect]
     Active Substance: OMALIZUMAB
     Route: 058
     Dates: start: 20180326
  11. XOLAIR [Suspect]
     Active Substance: OMALIZUMAB
     Route: 058
     Dates: start: 20181105
  12. XOLAIR [Suspect]
     Active Substance: OMALIZUMAB
     Route: 058
     Dates: start: 20180423
  13. XOLAIR [Suspect]
     Active Substance: OMALIZUMAB
     Route: 058
     Dates: start: 20200127
  14. XOLAIR [Suspect]
     Active Substance: OMALIZUMAB
     Route: 058
  15. XOLAIR [Suspect]
     Active Substance: OMALIZUMAB
     Route: 058
     Dates: start: 20200224
  16. XOLAIR [Suspect]
     Active Substance: OMALIZUMAB
     Route: 058
  17. XOLAIR [Suspect]
     Active Substance: OMALIZUMAB
     Route: 058
  18. XOLAIR [Suspect]
     Active Substance: OMALIZUMAB
     Route: 058
  19. INFLUENZA VIRUS VACCINE [Suspect]
     Active Substance: INFLUENZA VIRUS VACCINE
     Indication: Immunisation
     Dosage: UNK
     Route: 065
  20. ADVAIR HFA [Concomitant]
     Active Substance: FLUTICASONE PROPIONATE\SALMETEROL XINAFOATE
     Indication: Product used for unknown indication
     Dosage: 1 DF, BID
     Route: 065
     Dates: start: 20150701
  21. QVAR [Concomitant]
     Active Substance: BECLOMETHASONE DIPROPIONATE
     Indication: Product used for unknown indication
     Route: 065
     Dates: start: 20150101, end: 201808
  22. SINGULAIR [Concomitant]
     Active Substance: MONTELUKAST SODIUM
     Indication: Product used for unknown indication
     Route: 065
     Dates: start: 20151207
  23. VENTOLIN [Concomitant]
     Active Substance: ALBUTEROL SULFATE
     Indication: Product used for unknown indication
     Route: 065
     Dates: start: 20151207
  24. SYMBICORT [Concomitant]
     Active Substance: BUDESONIDE\FORMOTEROL FUMARATE DIHYDRATE
     Indication: Product used for unknown indication
     Dosage: UNK
  25. FLUTICASONE FUROATE [Concomitant]
     Active Substance: FLUTICASONE FUROATE
     Indication: Product used for unknown indication
     Route: 065
  26. ATIVAN [Concomitant]
     Active Substance: LORAZEPAM
     Indication: Product used for unknown indication
  27. ACLIDINIUM BROMIDE [Concomitant]
     Active Substance: ACLIDINIUM BROMIDE
     Indication: Product used for unknown indication
     Route: 065
     Dates: start: 20150101, end: 201808

REACTIONS (18)
  - Sputum discoloured [Not Recovered/Not Resolved]
  - Productive cough [Not Recovered/Not Resolved]
  - Blood pressure increased [Not Recovered/Not Resolved]
  - Influenza [Unknown]
  - Nasal discharge discolouration [Unknown]
  - Accident at work [Unknown]
  - Musculoskeletal pain [Unknown]
  - Drug hypersensitivity [Unknown]
  - Sinusitis [Unknown]
  - Pharyngitis [Unknown]
  - Weight increased [Unknown]
  - Inappropriate schedule of product administration [Unknown]
  - Bronchitis [Recovering/Resolving]
  - Illness [Unknown]
  - Asthma [Unknown]
  - Product storage error [Unknown]
  - Cough [Unknown]
  - COVID-19 [Unknown]

NARRATIVE: CASE EVENT DATE: 20161001
